FAERS Safety Report 18573248 (Version 1)
Quarter: 2020Q4

REPORT INFORMATION
  Report Type: Report from Study
  Country: IT (occurrence: IT)
  Receive Date: 20201203
  Receipt Date: 20201203
  Transmission Date: 20210114
  Serious: Yes (Hospitalization)
  Sender: FDA-Public Use
  Company Number: IT-TEVA-2020-IT-1854334

PATIENT
  Age: 83 Year
  Sex: Male

DRUGS (5)
  1. KARVEA [Concomitant]
     Active Substance: IRBESARTAN
  2. TORVAST [Concomitant]
     Active Substance: ATORVASTATIN
  3. CLOPIDOGREL [Suspect]
     Active Substance: CLOPIDOGREL BISULFATE
     Route: 065
     Dates: start: 20200101, end: 20201101
  4. METOPROLOL. [Concomitant]
     Active Substance: METOPROLOL
  5. CARDIOASPIRIN [Suspect]
     Active Substance: ASPIRIN
     Dates: start: 20200101, end: 20201101

REACTIONS (2)
  - Rectal haemorrhage [Not Recovered/Not Resolved]
  - Anaemia [Not Recovered/Not Resolved]

NARRATIVE: CASE EVENT DATE: 20201101
